FAERS Safety Report 9825622 (Version 1)
Quarter: 2013Q4

REPORT INFORMATION
  Report Type: Spontaneous
  Country: US (occurrence: None)
  Receive Date: 20131101
  Receipt Date: 20131101
  Transmission Date: 20140711
  Serious: Yes (Hospitalization)
  Sender: FDA-Public Use
  Company Number: ALL1-2013-04747

PATIENT
  Age: 11 Year
  Sex: Male

DRUGS (3)
  1. INTUNIV [Suspect]
     Indication: ATTENTION DEFICIT/HYPERACTIVITY DISORDER
     Dosage: 4 MG, 1X/DAY:QD, ORAL
     Route: 048
     Dates: start: 2013, end: 201307
  2. THYROID THERAPY [Concomitant]
  3. CORTISONE (CORTISONE) [Concomitant]

REACTIONS (3)
  - Bradycardia [None]
  - Decreased appetite [None]
  - Fatigue [None]
